FAERS Safety Report 9363523 (Version 2)
Quarter: 2013Q2

REPORT INFORMATION
  Report Type: Report from Study
  Country: US (occurrence: US)
  Receive Date: 20130624
  Receipt Date: 20130626
  Transmission Date: 20140414
  Serious: Yes (Other)
  Sender: FDA-Public Use
  Company Number: US-ABBOTT-13P-163-1105859-00

PATIENT
  Sex: Female

DRUGS (7)
  1. HUMIRA [Suspect]
     Indication: RHEUMATOID ARTHRITIS
  2. HUMIRA [Suspect]
  3. NAPROSYN [Suspect]
     Indication: PRODUCT USED FOR UNKNOWN INDICATION
  4. CRESTOR [Concomitant]
     Indication: BLOOD CHOLESTEROL INCREASED
     Dates: start: 2011
  5. LISINOPRIL [Concomitant]
     Indication: HYPERTENSION
     Dates: start: 2011
  6. TRIAMTERENE [Concomitant]
     Indication: HYPERTENSION
     Dates: start: 2011
  7. TYLENOL ARTHRITIS [Concomitant]
     Indication: ARTHRALGIA

REACTIONS (11)
  - Ovarian cyst [Unknown]
  - Uterine leiomyoma [Unknown]
  - Exostosis [Recovered/Resolved]
  - Intestinal perforation [Recovered/Resolved]
  - Mammoplasty [Recovered/Resolved]
  - Blood cholesterol increased [Unknown]
  - Hypertension [Unknown]
  - Musculoskeletal pain [Not Recovered/Not Resolved]
  - Pain in extremity [Not Recovered/Not Resolved]
  - Drug ineffective [Not Recovered/Not Resolved]
  - Arthralgia [Not Recovered/Not Resolved]
